FAERS Safety Report 5850738-4 (Version None)
Quarter: 2008Q3

REPORT INFORMATION
  Report Type: 
  Country: None (occurrence: None)
  Receive Date: 20080819
  Receipt Date: 20080819
  Transmission Date: 20090109
  Serious: Yes (Hospitalization)
  Sender: FDA-Public Use
  Company Number: None

PATIENT
  Age: 57 Year
  Sex: Female
  Weight: 74.8435 kg

DRUGS (3)
  1. LEVAQUIN [Suspect]
     Indication: EAR INFECTION
     Dosage: ONE PER DAY
  2. LEVAQUIN [Suspect]
     Indication: SINUSITIS
     Dosage: ONE PER DAY
  3. CIPRO [Suspect]
     Indication: EAR INFECTION
     Dosage: ONE PER DAY?

REACTIONS (9)
  - ARTHRITIS [None]
  - ARTHROPATHY [None]
  - BACK PAIN [None]
  - BONE DISORDER [None]
  - BONE SWELLING [None]
  - MUSCULOSKELETAL PAIN [None]
  - OEDEMA [None]
  - PAIN IN EXTREMITY [None]
  - TENDONITIS [None]
